FAERS Safety Report 8413382-0 (Version None)
Quarter: 2012Q2

REPORT INFORMATION
  Report Type: 
  Country: None (occurrence: None)
  Receive Date: 20120605
  Receipt Date: 20120531
  Transmission Date: 20120825
  Serious: Yes (Death)
  Sender: FDA-Public Use
  Company Number: US-CELGENEUS-163-21880-12042207

PATIENT
  Sex: Male

DRUGS (5)
  1. REVLIMID [Suspect]
     Indication: MULTIPLE MYELOMA
     Dosage: 10 MILLIGRAM
     Route: 048
     Dates: start: 20120107, end: 20120107
  2. REVLIMID [Suspect]
     Dosage: 10 MILLIGRAM
     Route: 048
     Dates: start: 20120120, end: 20120120
  3. VELCADE [Concomitant]
     Route: 065
     Dates: start: 20101004, end: 20120120
  4. DOXIL [Concomitant]
     Route: 065
     Dates: start: 20101004, end: 20120120
  5. ZOMETA [Concomitant]
     Route: 065
     Dates: start: 20101004, end: 20120120

REACTIONS (1)
  - MULTIPLE MYELOMA [None]
